FAERS Safety Report 9495945 (Version 1)
Quarter: 2013Q3

REPORT INFORMATION
  Report Type: Spontaneous
  Country: US (occurrence: US)
  Receive Date: 20130904
  Receipt Date: 20130904
  Transmission Date: 20140515
  Serious: Yes (Death)
  Sender: FDA-Public Use
  Company Number: US-PAR PHARMACEUTICAL, INC-2013SCPR006139

PATIENT
  Sex: 0

DRUGS (2)
  1. FENTANYL TRANSDERMAL SYSTEM [Suspect]
     Indication: PAIN
     Dosage: 50 MCG/H, UNKNOWN
     Route: 062
  2. FENTANYL TRANSDERMAL SYSTEM [Suspect]
     Dosage: 25 MCG/H, UNKNOWN
     Route: 062

REACTIONS (2)
  - Toxicity to various agents [Fatal]
  - Death [Fatal]
